FAERS Safety Report 18746362 (Version 1)
Quarter: 2021Q1

REPORT INFORMATION
  Report Type: Spontaneous
  Country: US (occurrence: US)
  Receive Date: 20210114
  Receipt Date: 20210114
  Transmission Date: 20210419
  Serious: Yes (Other)
  Sender: FDA-Public Use
  Company Number: None

PATIENT
  Age: 31 Year
  Sex: Female

DRUGS (6)
  1. VITAMIN D [Concomitant]
     Active Substance: VITAMIN D NOS
  2. FLUOXETINE [Concomitant]
     Active Substance: FLUOXETINE HYDROCHLORIDE
  3. OMEPRAZOLE. [Concomitant]
     Active Substance: OMEPRAZOLE
  4. VITAMIN B [Concomitant]
     Active Substance: VITAMIN B
  5. IRON [Concomitant]
     Active Substance: IRON
  6. PLEGRIDY [Suspect]
     Active Substance: PEGINTERFERON BETA-1A
     Indication: MULTIPLE SCLEROSIS
     Dosage: ?          OTHER STRENGTH:MCG;QUANTITY:1 INJECTION(S);OTHER FREQUENCY:1 EVERY 14 DAYS;?
     Route: 058
     Dates: start: 20180131, end: 20210101

REACTIONS (1)
  - Dermatitis atopic [None]

NARRATIVE: CASE EVENT DATE: 20190101
